FAERS Safety Report 19875019 (Version 4)
Quarter: 2022Q1

REPORT INFORMATION
  Report Type: Spontaneous
  Country: US (occurrence: US)
  Receive Date: 20210923
  Receipt Date: 20220210
  Transmission Date: 20220424
  Serious: Yes (Other)
  Sender: FDA-Public Use
  Company Number: US-PFIZER INC-202101219153

PATIENT
  Age: 44 Year
  Sex: Male

DRUGS (1)
  1. HEPARIN SODIUM [Suspect]
     Active Substance: HEPARIN SODIUM
     Indication: Nephrostomy
     Dosage: UNK

REACTIONS (2)
  - Heparin-induced thrombocytopenia [Recovered/Resolved]
  - Cerebral venous sinus thrombosis [Recovered/Resolved]
